FAERS Safety Report 19785785 (Version 1)
Quarter: 2021Q3

REPORT INFORMATION
  Report Type: Spontaneous
  Country: DE (occurrence: DE)
  Receive Date: 20210903
  Receipt Date: 20210903
  Transmission Date: 20211014
  Serious: Yes (Hospitalization)
  Sender: FDA-Public Use
  Company Number: DE-MYLANLABS-2021M1058019

PATIENT
  Age: 76 Year
  Sex: Female

DRUGS (22)
  1. KALINOR                            /00031402/ [Concomitant]
     Active Substance: POTASSIUM CHLORIDE
     Dosage: 1?0?0?0, BRAUSETABLETTEN
  2. AMLODIPIN                          /00972401/ [Concomitant]
     Active Substance: AMLODIPINE BESYLATE
     Dosage: 5 MG, 0.5?0?0.5?0, TABLETTEN
  3. RAMIPRIL. [Concomitant]
     Active Substance: RAMIPRIL
     Dosage: 5 MG, 1?0?0?1, TABLETTEN
  4. RISPERIDONE. [Suspect]
     Active Substance: RISPERIDONE
     Indication: PRODUCT USED FOR UNKNOWN INDICATION
     Dosage: 1 MG, 0?0?0?0.5, TABLETTEN
  5. QUETIAPIN [Concomitant]
     Active Substance: QUETIAPINE
     Dosage: 25 MG, BEDARF, TABLETTEN
  6. OMEPRAZOL                          /00661201/ [Concomitant]
     Active Substance: OMEPRAZOLE
     Dosage: 20 MG, 1?0?0?0, KAPSELN
  7. MEMANTIN [Suspect]
     Active Substance: MEMANTINE
     Dosage: 20 MG, 1?0?0?0, TABLETTEN
  8. LACTULOSE. [Suspect]
     Active Substance: LACTULOSE
     Dosage: 20 MILLILITER, QD
  9. LACTULOSE. [Concomitant]
     Active Substance: LACTULOSE
     Dosage: 20 MILLILITER
     Route: 048
  10. TAVOR (LORAZEPAM) [Concomitant]
     Active Substance: LORAZEPAM
     Dosage: 1 MILLIGRAM
  11. MOXONIDIN [Concomitant]
     Active Substance: MOXONIDINE
     Dosage: 0.3 MG, 1?0?0?0, TABLETTEN
  12. MAGNESIUM [Concomitant]
     Active Substance: MAGNESIUM
     Dosage: 1?0?1?0, BRAUSETABLETTEN
  13. MOVICOL [Concomitant]
     Active Substance: POLYETHYLENE GLYCOL 3350\POTASSIUM CHLORIDE\SODIUM BICARBONATE\SODIUM CHLORIDE
     Dosage: DEMAND, SACHET/GRANULES
  14. METAMIZOL                          /06276701/ [Concomitant]
     Active Substance: METAMIZOLE
     Dosage: 500 MG, BEDARF, TABLETTEN
  15. ATORVASTATIN [Concomitant]
     Active Substance: ATORVASTATIN
     Dosage: 20 MG, 0?0?1?0, TABLETTEN
  16. QUETIAPIN [Suspect]
     Active Substance: QUETIAPINE
     Dosage: 50 MILLIGRAM, QD
  17. ASPIRIN PROTECT [Concomitant]
     Active Substance: ASPIRIN
     Dosage: 100 MILLIGRAM, QD
  18. LECICARBON CO2 LAXANS [Concomitant]
     Dosage: BEDARF, SUPPOSITORIEN
     Route: 054
  19. EBRANTIL                           /00631801/ [Concomitant]
     Active Substance: URAPIDIL
     Dosage: 60 MG, 1?1?1?0, KAPSELN
  20. QUETIAPINE. [Suspect]
     Active Substance: QUETIAPINE
     Indication: PRODUCT USED FOR UNKNOWN INDICATION
     Dosage: 25 MG, 1?1?0?0, TABLETTEN
  21. LEVOTHYROXINE SODIUM. [Concomitant]
     Active Substance: LEVOTHYROXINE SODIUM
     Dosage: 100 ?G, 0.5?0?0?0, TABLETTEN
  22. DECODERM TRI                       /01263901/ [Concomitant]
     Dosage: 1?0?1?0, CREME
     Route: 061

REACTIONS (5)
  - Asthenia [Unknown]
  - Somnolence [Unknown]
  - Disturbance in attention [Unknown]
  - Dehydration [Unknown]
  - General physical health deterioration [Unknown]
